FAERS Safety Report 9796643 (Version 2)
Quarter: 2014Q2

REPORT INFORMATION
  Report Type: Report from Study
  Country: None (occurrence: ES)
  Receive Date: 20140103
  Receipt Date: 20140411
  Transmission Date: 20141212
  Serious: Yes (Other)
  Sender: FDA-Public Use
  Company Number: ES-TEVA-453997USA

PATIENT
  Age: 61 Year
  Sex: Female
  Weight: 100 kg

DRUGS (6)
  1. BENDAMUSTINE HYDROCHLORIDE [Suspect]
     Indication: PLASMA CELL MYELOMA
     Route: 042
     Dates: start: 20120508
  2. BENDAMUSTINE HYDROCHLORIDE [Suspect]
     Route: 042
     Dates: start: 20120909
  3. VELCADE [Suspect]
     Indication: PLASMA CELL MYELOMA
     Route: 042
     Dates: start: 20120508
  4. VELCADE [Suspect]
     Route: 042
     Dates: start: 20120918
  5. PREDNISONE [Suspect]
     Indication: PLASMA CELL MYELOMA
     Route: 042
     Dates: start: 20120508
  6. PREDNISONE [Suspect]
     Route: 042
     Dates: start: 20120831

REACTIONS (1)
  - Blood stem cell harvest failure [Recovered/Resolved]
